FAERS Safety Report 6070885-4 (Version None)
Quarter: 2009Q1

REPORT INFORMATION
  Report Type: 
  Country: None (occurrence: None)
  Receive Date: 20090209
  Receipt Date: 20081119
  Transmission Date: 20090719
  Serious: No
  Sender: FDA-Public Use
  Company Number: A0756594A

PATIENT
  Sex: Female

DRUGS (1)
  1. PAXIL [Suspect]
     Indication: STRESS
     Route: 048
     Dates: start: 19980101

REACTIONS (3)
  - ABNORMAL BEHAVIOUR [None]
  - ADVERSE EVENT [None]
  - UNEVALUABLE EVENT [None]
